FAERS Safety Report 8366063-6 (Version None)
Quarter: 2012Q2

REPORT INFORMATION
  Report Type: 
  Country: None (occurrence: None)
  Receive Date: 20120517
  Receipt Date: 20120510
  Transmission Date: 20120825
  Serious: Yes (Hospitalization)
  Sender: FDA-Public Use
  Company Number: US-ASTRAZENECA-2011SE41525

PATIENT
  Age: 51 Year
  Sex: Female
  Weight: 95.3 kg

DRUGS (22)
  1. NEXIUM [Suspect]
     Route: 048
     Dates: start: 20080101
  2. GABAPENTIN [Concomitant]
  3. PROVERA [Concomitant]
     Indication: HAEMOSTASIS
  4. LIDOCAINE [Concomitant]
     Indication: TRIGGER FINGER
     Dosage: 0.5CC
     Dates: start: 20081007
  5. ISOSORBIDE DINITRATE [Concomitant]
  6. ASPIRIN [Concomitant]
     Dates: start: 20070614
  7. NEXIUM [Suspect]
     Indication: GASTROOESOPHAGEAL REFLUX DISEASE
     Route: 048
     Dates: start: 20060101
  8. SINGULAIR [Concomitant]
  9. FERROUS SULFATE TAB [Concomitant]
     Indication: ANAEMIA
  10. CALCIUM [Concomitant]
     Indication: OSTEOPOROSIS
     Dates: start: 20050101
  11. GABAPENTIN [Concomitant]
  12. LORTAB [Concomitant]
     Indication: PAIN
     Dosage: 7.5 MG FOUR TIMES A DAY
     Dates: start: 20081007
  13. PLAVIX [Concomitant]
     Dates: start: 20070614
  14. BENICAR HCT [Concomitant]
     Dosage: 40/12.5MG
  15. NEXIUM [Suspect]
     Route: 048
     Dates: start: 20050101, end: 20120101
  16. SPIRONOLACT [Concomitant]
  17. CRESTOR [Concomitant]
     Dates: start: 20070614
  18. PLAVIX [Concomitant]
  19. TRAMADOL HYDROCHLORIDE [Concomitant]
  20. ATACAND HCT [Concomitant]
     Dosage: 32/12.5MG DAILY
     Route: 048
  21. KENALOG [Concomitant]
     Indication: TRIGGER FINGER
     Dosage: 0.5 CC
     Dates: start: 20081007
  22. HYDROCHLOROTHIAZIDE [Concomitant]
     Dates: start: 20070614

REACTIONS (5)
  - UPPER LIMB FRACTURE [None]
  - ANKLE FRACTURE [None]
  - SCAR [None]
  - EMOTIONAL DISTRESS [None]
  - LOWER LIMB FRACTURE [None]
